FAERS Safety Report 5071447-8 (Version None)
Quarter: 2006Q3

REPORT INFORMATION
  Report Type: 
  Country: None (occurrence: None)
  Receive Date: 20060804
  Receipt Date: 20060530
  Transmission Date: 20061208
  Serious: Yes (Other)
  Sender: FDA-Public Use
  Company Number: US-GLAXOSMITHKLINE-A0607247A

PATIENT
  Age: 75 Year
  Sex: Male

DRUGS (5)
  1. ADVAIR DISKUS 100/50 [Suspect]
     Indication: CHRONIC OBSTRUCTIVE PULMONARY DISEASE
     Dosage: 1PUFF PER DAY
     Route: 055
     Dates: end: 20060525
  2. ACIPHEX [Concomitant]
  3. UNKNOWN MEDICATION [Concomitant]
     Indication: HERNIA
  4. MYLANTA [Concomitant]
  5. PEPTO BISMOL [Concomitant]

REACTIONS (13)
  - ADVERSE EVENT [None]
  - ANXIETY [None]
  - APHASIA [None]
  - DRY MOUTH [None]
  - DYSGEUSIA [None]
  - EYE DISORDER [None]
  - HEADACHE [None]
  - HEART RATE INCREASED [None]
  - LACRIMATION INCREASED [None]
  - MENTAL DISORDER [None]
  - PHARMACEUTICAL PRODUCT COMPLAINT [None]
  - PHARYNGOLARYNGEAL PAIN [None]
  - VISION BLURRED [None]
